FAERS Safety Report 16735291 (Version 1)
Quarter: 2019Q3

REPORT INFORMATION
  Report Type: Report from Study
  Country: NL (occurrence: NL)
  Receive Date: 20190823
  Receipt Date: 20190823
  Transmission Date: 20191005
  Serious: Yes (Other)
  Sender: FDA-Public Use
  Company Number: NL-MYLANLABS-2019M1078301

PATIENT
  Sex: Female

DRUGS (1)
  1. GLATIRAMEERACETAAT MYLAN 40 MG/ML [Suspect]
     Active Substance: GLATIRAMER ACETATE
     Indication: MULTIPLE SCLEROSIS
     Dosage: UNK, 3XW
     Route: 058

REACTIONS (6)
  - Vomiting [Unknown]
  - Loss of consciousness [Recovering/Resolving]
  - Dysgeusia [Recovering/Resolving]
  - Malaise [Recovered/Resolved]
  - Muscle strain [Unknown]
  - Photopsia [Recovering/Resolving]
